FAERS Safety Report 7430316-6 (Version None)
Quarter: 2011Q2

REPORT INFORMATION
  Report Type: 
  Country: None (occurrence: None)
  Receive Date: 20110421
  Receipt Date: 20110407
  Transmission Date: 20111010
  Serious: Yes (Death)
  Sender: FDA-Public Use
  Company Number: JP-CELGENEUS-TAJPN-11-0213

PATIENT
  Sex: Female
  Weight: 61 kg

DRUGS (2)
  1. ABRAXANE [Suspect]
     Dosage: 403 MILLIGRAM
     Dates: start: 20110114, end: 20110114
  2. ABRAXANE [Suspect]
     Indication: BREAST CANCER
     Dosage: 403 MILLIGRAM
     Dates: start: 20101222, end: 20101222

REACTIONS (1)
  - INTERSTITIAL LUNG DISEASE [None]
